FAERS Safety Report 4917136-9 (Version None)
Quarter: 2006Q1

REPORT INFORMATION
  Report Type: 
  Country: None (occurrence: None)
  Receive Date: 20060214
  Receipt Date: 20060130
  Transmission Date: 20060701
  Serious: No
  Sender: FDA-Public Use
  Company Number: GB200601005219

PATIENT
  Age: 17 Year
  Sex: Female

DRUGS (3)
  1. ZYPREXA [Suspect]
     Dosage: SEE IMAGE
     Dates: start: 20051001
  2. ZYPREXA [Suspect]
     Dosage: SEE IMAGE
     Dates: start: 20060110
  3. FLUOXETINE HCL [Concomitant]

REACTIONS (1)
  - WHITE BLOOD CELL COUNT DECREASED [None]
